FAERS Safety Report 5806270-7 (Version None)
Quarter: 2008Q3

REPORT INFORMATION
  Report Type: 
  Country: None (occurrence: None)
  Receive Date: 20080708
  Receipt Date: 20080627
  Transmission Date: 20090109
  Serious: Yes (Hospitalization, Other)
  Sender: FDA-Public Use
  Company Number: 2008SP008063

PATIENT
  Age: 44 Year
  Sex: Female

DRUGS (6)
  1. PEG-INTRON [Suspect]
     Indication: HEPATITIS C
     Dosage: 96 MCG; QW; SC
     Route: 058
     Dates: start: 20080413
  2. REBETOL [Suspect]
     Indication: HEPATITIS C
     Dosage: 400 MG; BID; PO
     Route: 048
     Dates: start: 20080413
  3. ZESTORETIC [Concomitant]
  4. LISINOPRIL [Concomitant]
  5. NAPROSYN [Concomitant]
  6. ZANTAC [Concomitant]

REACTIONS (17)
  - CHEST PAIN [None]
  - DIZZINESS [None]
  - EPISTAXIS [None]
  - EYE PAIN [None]
  - FATIGUE [None]
  - HAEMATEMESIS [None]
  - HEADACHE [None]
  - LEUKOPENIA [None]
  - MADAROSIS [None]
  - NAUSEA [None]
  - NON-CARDIAC CHEST PAIN [None]
  - OESOPHAGEAL SPASM [None]
  - PLEURITIC PAIN [None]
  - PROTEIN TOTAL INCREASED [None]
  - SKIN DISCOLOURATION [None]
  - SKIN DISORDER [None]
  - VISION BLURRED [None]
